FAERS Safety Report 12167794 (Version 1)
Quarter: 2016Q1

REPORT INFORMATION
  Report Type: Report from Study
  Country: US (occurrence: US)
  Receive Date: 20160310
  Receipt Date: 20160310
  Transmission Date: 20160526
  Serious: Yes (Death, Hospitalization, Other)
  Sender: FDA-Public Use
  Company Number: US-JNJFOC-20160212395

PATIENT
  Age: 64 Year
  Sex: Male

DRUGS (7)
  1. FINASTERIDE. [Concomitant]
     Active Substance: FINASTERIDE
  2. IMBRUVICA [Suspect]
     Active Substance: IBRUTINIB
     Indication: MANTLE CELL LYMPHOMA
     Dosage: 560 MG, QD
     Route: 048
     Dates: start: 20151216, end: 20160116
  3. OXYCODONE [Concomitant]
     Active Substance: OXYCODONE
     Indication: PAIN
     Dosage: QID,PRN
  4. FENTANYL. [Concomitant]
     Active Substance: FENTANYL
     Dosage: 25MCG EVERY 72 HRS
  5. PEPCID [Concomitant]
     Active Substance: FAMOTIDINE
  6. ATIVAN [Concomitant]
     Active Substance: LORAZEPAM
     Indication: AGITATION
  7. PLAVIX [Concomitant]
     Active Substance: CLOPIDOGREL BISULFATE
     Dosage: 25MCG EVERY 72 HRS

REACTIONS (6)
  - Disease progression [Fatal]
  - Pneumothorax [Unknown]
  - Thrombocytopenia [Unknown]
  - Thrombophlebitis superficial [Unknown]
  - Atelectasis [Unknown]
  - Leukocytosis [Unknown]

NARRATIVE: CASE EVENT DATE: 20160107
